FAERS Safety Report 15390742 (Version 1)
Quarter: 2018Q3

REPORT INFORMATION
  Report Type: Spontaneous
  Country: US (occurrence: US)
  Receive Date: 20180917
  Receipt Date: 20180917
  Transmission Date: 20181010
  Serious: No
  Sender: FDA-Public Use
  Company Number: US-SA-2018SA256814

PATIENT
  Age: 77 Year
  Sex: Male

DRUGS (5)
  1. PRALUENT [Suspect]
     Active Substance: ALIROCUMAB
     Dosage: 75 MG, QOW
     Route: 058
     Dates: start: 2016
  2. ALIROCUMAB PREFILLED PEN [Suspect]
     Active Substance: ALIROCUMAB
     Dosage: UNK, QOW
     Route: 058
     Dates: start: 2016
  3. PRALUENT [Suspect]
     Active Substance: ALIROCUMAB
     Dosage: 100 MG, QOW
     Route: 058
  4. FISH OIL [Suspect]
     Active Substance: FISH OIL
     Dosage: UNK
  5. ALIROCUMAB PREFILLED PEN [Suspect]
     Active Substance: ALIROCUMAB
     Dosage: UNK, QOW
     Route: 058

REACTIONS (2)
  - Contusion [Recovered/Resolved]
  - Asthenia [Unknown]

NARRATIVE: CASE EVENT DATE: 2018
